FAERS Safety Report 7008121-4 (Version None)
Quarter: 2010Q3

REPORT INFORMATION
  Report Type: 
  Country: None (occurrence: None)
  Receive Date: 20100917
  Receipt Date: 20100908
  Transmission Date: 20110219
  Serious: Yes (Other)
  Sender: FDA-Public Use
  Company Number: 2010SP047791

PATIENT
  Age: 19 Year
  Sex: Female
  Weight: 47 kg

DRUGS (3)
  1. IMPLANON [Suspect]
     Dosage: 68 MG
     Dates: start: 20090609, end: 20100820
  2. IMPLANON [Suspect]
  3. ITRACONAZOLE [Concomitant]

REACTIONS (19)
  - ABDOMINAL PAIN [None]
  - ANAEMIA [None]
  - BACTERIAL TEST POSITIVE [None]
  - COAGULOPATHY [None]
  - ERYTHEMA [None]
  - FUNGAL INFECTION [None]
  - HAEMATOMA [None]
  - HAEMORRHAGE [None]
  - HEADACHE [None]
  - MENOMETRORRHAGIA [None]
  - NAUSEA [None]
  - OEDEMA PERIPHERAL [None]
  - PAIN IN EXTREMITY [None]
  - PETECHIAE [None]
  - PLATELET COUNT DECREASED [None]
  - PROTEINURIA [None]
  - RHEUMATOID FACTOR INCREASED [None]
  - SKIN ULCER [None]
  - TYPHUS [None]
